FAERS Safety Report 6278274-4 (Version None)
Quarter: 2009Q3

REPORT INFORMATION
  Report Type: 
  Country: None (occurrence: None)
  Receive Date: 20090722
  Receipt Date: 20090715
  Transmission Date: 20100115
  Serious: Yes (Death)
  Sender: FDA-Public Use
  Company Number: US-AVENTIS-200916209US

PATIENT
  Sex: Female

DRUGS (4)
  1. LANTUS [Suspect]
     Dosage: DOSE: UNK
     Route: 058
  2. ACTOS [Suspect]
     Dosage: DOSE: UNK
  3. ORAL ANTIDIABETICS [Suspect]
     Dosage: DOSE: UNK
  4. ANTIHYPERTENSIVES [Suspect]
     Dosage: DOSE: UNK

REACTIONS (1)
  - MYOCARDIAL INFARCTION [None]
